FAERS Safety Report 10177429 (Version 1)
Quarter: 2014Q2

REPORT INFORMATION
  Report Type: Spontaneous
  Country: US (occurrence: US)
  Receive Date: 20140516
  Receipt Date: 20140516
  Transmission Date: 20141212
  Serious: Yes (Other)
  Sender: FDA-Public Use
  Company Number: US-PFIZER INC-2014127281

PATIENT
  Age: 41 Year
  Sex: Female
  Weight: 90.7 kg

DRUGS (4)
  1. ROBITUSSIN COUGH AND CHEST CONGESTION DM [Suspect]
     Indication: COUGH
     Dosage: UNK
     Dates: start: 201404, end: 2014
  2. ROBITUSSIN COUGH AND CHEST CONGESTION DM [Suspect]
     Indication: RESPIRATORY TRACT CONGESTION
  3. ROBITUSSIN PEAK COLD MULTI-SYMPTOM COLD [Suspect]
     Indication: COUGH
     Dosage: UNK, 3X/DAY
     Dates: start: 201404, end: 2014
  4. ROBITUSSIN PEAK COLD MULTI-SYMPTOM COLD [Suspect]
     Indication: RESPIRATORY TRACT CONGESTION

REACTIONS (4)
  - Poor quality drug administered [Unknown]
  - Cardiac flutter [Recovered/Resolved]
  - Product packaging issue [Unknown]
  - Nervousness [Recovered/Resolved]
